FAERS Safety Report 14576658 (Version 5)
Quarter: 2019Q2

REPORT INFORMATION
  Report Type: Spontaneous
  Country: US (occurrence: US)
  Receive Date: 20180227
  Receipt Date: 20190625
  Transmission Date: 20190711
  Serious: Yes (Other)
  Sender: FDA-Public Use
  Company Number: US-JNJFOC-20180222692

PATIENT
  Age: 48 Year
  Sex: Female
  Weight: 49.94 kg

DRUGS (6)
  1. METHYLPREDNISOLONE. [Concomitant]
     Active Substance: METHYLPREDNISOLONE
  2. POTASSIUM CITRATE. [Concomitant]
     Active Substance: POTASSIUM CITRATE
     Indication: NEPHROCALCINOSIS
     Dates: start: 201704
  3. MAGNESIUM [Concomitant]
     Active Substance: MAGNESIUM
  4. DARZALEX [Suspect]
     Active Substance: DARATUMUMAB
     Indication: PLASMA CELL MYELOMA
     Dosage: VIAL FORM.
     Route: 042
     Dates: start: 20180119
  5. CALCIUM [Concomitant]
     Active Substance: CALCIUM
  6. VALTREX [Concomitant]
     Active Substance: VALACYCLOVIR HYDROCHLORIDE
     Indication: ANTIVIRAL PROPHYLAXIS

REACTIONS (4)
  - Adverse event [Unknown]
  - Peripheral sensory neuropathy [Not Recovered/Not Resolved]
  - Drug ineffective [Unknown]
  - Pain [Recovered/Resolved]

NARRATIVE: CASE EVENT DATE: 2018
